FAERS Safety Report 12869800 (Version 3)
Quarter: 2018Q1

REPORT INFORMATION
  Report Type: Report from Study
  Country: US (occurrence: US)
  Receive Date: 20161020
  Receipt Date: 20180105
  Transmission Date: 20180508
  Serious: No
  Sender: FDA-Public Use
  Company Number: US-AMGEN-USASL2016118702

PATIENT
  Age: 61 Year
  Sex: Female

DRUGS (1)
  1. REPATHA [Suspect]
     Active Substance: EVOLOCUMAB
     Indication: PRODUCT USED FOR UNKNOWN INDICATION
     Dosage: UNK, Q2WK
     Route: 065
     Dates: start: 201602

REACTIONS (6)
  - Influenza like illness [Unknown]
  - Muscle spasms [Unknown]
  - Malaise [Unknown]
  - Respiratory disorder [Not Recovered/Not Resolved]
  - Hypersensitivity [Unknown]
  - Nasopharyngitis [Unknown]
